FAERS Safety Report 9798177 (Version 3)
Quarter: 2014Q1

REPORT INFORMATION
  Report Type: Report from Study
  Country: BR (occurrence: BR)
  Receive Date: 20140106
  Receipt Date: 20140203
  Transmission Date: 20141002
  Serious: Yes (Life-Threatening, Other)
  Sender: FDA-Public Use
  Company Number: PHHY2013BR110223

PATIENT
  Age: 39 Year
  Sex: Female
  Weight: 47 kg

DRUGS (9)
  1. GILENYA [Suspect]
     Indication: MULTIPLE SCLEROSIS
     Dosage: 0.5 MG, QD (28 CAPSULE)
     Route: 048
     Dates: start: 20130727
  2. FEMIANE [Concomitant]
     Indication: CONTRACEPTION
     Route: 048
  3. SERTRALINE [Concomitant]
     Indication: DEPRESSION
     Dosage: 2 DF, QD
     Route: 048
  4. ALPRAZOLAM [Concomitant]
     Indication: INSOMNIA
     Dosage: 1 DF, QD
     Route: 048
  5. EUTHYROX [Concomitant]
     Indication: HYPOTHYROIDISM
     Dosage: 1 DF, QD
     Route: 048
  6. SERENATA [Concomitant]
     Indication: DEPRESSION
     Dosage: 2 DF, DAILY
     Route: 048
  7. STILNOX [Concomitant]
     Indication: INSOMNIA
     Dosage: 1 DF, DAILY
     Route: 048
     Dates: start: 201308
  8. ELANI [Concomitant]
     Indication: CONTRACEPTION
  9. STILRAM [Concomitant]
     Indication: INSOMNIA
     Dosage: 10 MG, QD
     Route: 048
     Dates: start: 201306

REACTIONS (12)
  - Arrhythmia [Not Recovered/Not Resolved]
  - Heart rate increased [Not Recovered/Not Resolved]
  - Impaired driving ability [Not Recovered/Not Resolved]
  - Dysphagia [Not Recovered/Not Resolved]
  - Speech disorder [Not Recovered/Not Resolved]
  - Decreased appetite [Recovering/Resolving]
  - Dizziness [Not Recovered/Not Resolved]
  - Hyperacusis [Recovering/Resolving]
  - Oropharyngeal pain [Not Recovered/Not Resolved]
  - Throat irritation [Recovering/Resolving]
  - Stress [Unknown]
  - Gamma-glutamyltransferase abnormal [Recovering/Resolving]
